FAERS Safety Report 8956132 (Version 3)
Quarter: 2013Q1

REPORT INFORMATION
  Report Type: Spontaneous
  Country: BR (occurrence: BR)
  Receive Date: 20121210
  Receipt Date: 20130318
  Transmission Date: 20140127
  Serious: Yes (Other)
  Sender: FDA-Public Use
  Company Number: PHHY2012BR113370

PATIENT
  Age: 5 Year
  Sex: Male

DRUGS (1)
  1. TRILEPTAL [Suspect]
     Dosage: 10 ML PER DAY

REACTIONS (2)
  - Epilepsy [Unknown]
  - Convulsion [Unknown]
